FAERS Safety Report 15673323 (Version 3)
Quarter: 2019Q1

REPORT INFORMATION
  Report Type: Spontaneous
  Country: US (occurrence: US)
  Receive Date: 20181129
  Receipt Date: 20190122
  Transmission Date: 20190417
  Serious: No
  Sender: FDA-Public Use
  Company Number: US-PFIZER INC-2018480420

PATIENT
  Sex: Female
  Weight: 93 kg

DRUGS (1)
  1. MENEST [Suspect]
     Active Substance: ESTROGENS, ESTERIFIED
     Indication: HORMONE REPLACEMENT THERAPY
     Dosage: 1.25 MG, DAILY (1 LIGHT GREEN, OBLONG SHAPED TABLET BY MOUTH DAILY)
     Route: 048

REACTIONS (1)
  - Product dose omission [Unknown]
